FAERS Safety Report 10090415 (Version 1)
Quarter: 2014Q2

REPORT INFORMATION
  Report Type: Spontaneous
  Country: US (occurrence: US)
  Receive Date: 20140421
  Receipt Date: 20140421
  Transmission Date: 20141212
  Serious: Yes (Hospitalization)
  Sender: FDA-Public Use
  Company Number: US-BAYER-2014-056444

PATIENT
  Age: 38 Year
  Sex: Female

DRUGS (7)
  1. YASMIN [Suspect]
  2. BYETTA [Concomitant]
     Dosage: 10 MG, BID
  3. NEURONTIN [Concomitant]
     Dosage: 300 MG, UNK
  4. TRICOR [Concomitant]
     Dosage: 145 MG, UNK
  5. METFORMIN [Concomitant]
     Dosage: 500 MG, UNK
  6. FUROSEMIDE [Concomitant]
     Dosage: 20 MG, UNK
  7. QUININE [Concomitant]

REACTIONS (1)
  - Deep vein thrombosis [None]
